FAERS Safety Report 16681904 (Version 1)
Quarter: 2019Q3

REPORT INFORMATION
  Report Type: Spontaneous
  Country: US (occurrence: US)
  Receive Date: 20190622
  Receipt Date: 20190622
  Transmission Date: 20191004
  Serious: No
  Sender: FDA-Public Use
  Company Number: None

PATIENT
  Age: 7 Year
  Sex: Male
  Weight: 16.8 kg

DRUGS (5)
  1. THIOTEPA. [Suspect]
     Active Substance: THIOTEPA
  2. CARBOPLATIN. [Suspect]
     Active Substance: CARBOPLATIN
     Dates: end: 20190602
  3. CYCLOPHOSPHAMIDE. [Suspect]
     Active Substance: CYCLOPHOSPHAMIDE
  4. ETOPOSIDE (VP-16) [Suspect]
     Active Substance: ETOPOSIDE
     Dates: end: 20190603
  5. MELPHALAN. [Suspect]
     Active Substance: MELPHALAN
     Dates: end: 20190601

REACTIONS (9)
  - Pleural effusion [None]
  - Autologous haematopoietic stem cell transplant [None]
  - Engraftment syndrome [None]
  - Respiratory distress [None]
  - Fluid overload [None]
  - Adenovirus infection [None]
  - Pyrexia [None]
  - Infection [None]
  - Blood culture positive [None]

NARRATIVE: CASE EVENT DATE: 20190615
